FAERS Safety Report 10422741 (Version 1)
Quarter: 2014Q3

REPORT INFORMATION
  Report Type: Spontaneous
  Country: US (occurrence: US)
  Receive Date: 20140902
  Receipt Date: 20140902
  Transmission Date: 20150326
  Serious: No
  Sender: FDA-Public Use
  Company Number: US-009507513-1408USA016721

PATIENT
  Age: 55 Year
  Sex: Male

DRUGS (1)
  1. PRINIVIL [Suspect]
     Active Substance: LISINOPRIL
     Indication: PROTEINURIA
     Dosage: 40 MG, BID
     Route: 048

REACTIONS (1)
  - Drug ineffective [Unknown]
